FAERS Safety Report 7734077-2 (Version None)
Quarter: 2011Q3

REPORT INFORMATION
  Report Type: 
  Country: None (occurrence: None)
  Receive Date: 20110907
  Receipt Date: 20110825
  Transmission Date: 20111222
  Serious: Yes (Hospitalization)
  Sender: FDA-Public Use
  Company Number: US-NOVOPROD-334168

PATIENT
  Sex: Female

DRUGS (8)
  1. METPROLOL [Concomitant]
     Indication: HYPERTENSION
     Dosage: UNK
     Route: 048
  2. CRESTOR [Concomitant]
     Indication: PROPHYLAXIS
     Dosage: UNK
     Route: 048
  3. NOVOLOG [Suspect]
     Indication: TYPE 2 DIABETES MELLITUS
     Dosage: 45 U, QD (BEFORE BREAKFAST)
     Route: 058
     Dates: start: 20110801, end: 20110801
  4. NOVOLOG [Suspect]
     Dosage: 40 U, QD (BEFORE DINNER)
     Route: 058
     Dates: start: 20110801, end: 20110801
  5. NOVOLOG MIX 70/30 [Suspect]
     Indication: TYPE 2 DIABETES MELLITUS
     Dosage: 45 U, QD (BEFORE BREAKFAST)
     Route: 058
  6. NOVOLOG MIX 70/30 [Suspect]
     Dosage: 40 U, QD (BEFORE DINNER)
     Route: 058
  7. AMARYL [Concomitant]
     Indication: TYPE 2 DIABETES MELLITUS
     Dosage: UNK
     Route: 048
  8. MAXZIDE [Concomitant]
     Indication: HYPERTENSION
     Dosage: UNK
     Route: 048

REACTIONS (3)
  - DRUG DISPENSING ERROR [None]
  - BLOOD GLUCOSE INCREASED [None]
  - THROMBOSIS [None]
